FAERS Safety Report 9677439 (Version 5)
Quarter: 2014Q1

REPORT INFORMATION
  Report Type: Spontaneous
  Country: FR (occurrence: FR)
  Receive Date: 20131108
  Receipt Date: 20140103
  Transmission Date: 20141002
  Serious: Yes (Death, Hospitalization, Other)
  Sender: FDA-Public Use
  Company Number: FR-CELGENEUS-056-50794-13106223

PATIENT
  Age: 67 Year
  Sex: Male
  Weight: 95 kg

DRUGS (16)
  1. VIDAZA [Suspect]
     Indication: CHRONIC MYELOID LEUKAEMIA
     Route: 058
     Dates: start: 20130731
  2. VIDAZA [Suspect]
     Route: 058
     Dates: start: 20130904
  3. VIDAZA [Suspect]
     Route: 058
     Dates: start: 20131016, end: 20131022
  4. HYDREA [Concomitant]
     Indication: CHRONIC MYELOID LEUKAEMIA
     Route: 048
     Dates: start: 20130703, end: 20131024
  5. HYDROXYCARBAMIDE [Concomitant]
     Indication: CHRONIC MYELOID LEUKAEMIA
     Dosage: 1000 MILLIGRAM
     Route: 065
     Dates: end: 20130710
  6. HYDROXYCARBAMIDE [Concomitant]
     Dosage: 1 CAPSULE
     Route: 065
  7. METFORMIN ACTAVIS [Concomitant]
     Indication: PRODUCT USED FOR UNKNOWN INDICATION
     Dosage: 1000 MILLIGRAM
     Route: 065
  8. TEMERIT [Concomitant]
     Indication: PRODUCT USED FOR UNKNOWN INDICATION
     Route: 065
  9. KENZEN [Concomitant]
     Indication: PRODUCT USED FOR UNKNOWN INDICATION
     Route: 065
  10. ADANCOR [Concomitant]
     Indication: PRODUCT USED FOR UNKNOWN INDICATION
     Route: 065
  11. PERMIXON [Concomitant]
     Indication: PRODUCT USED FOR UNKNOWN INDICATION
     Dosage: 320 MILLIGRAM
     Route: 065
  12. IXPRIM [Concomitant]
     Indication: PRODUCT USED FOR UNKNOWN INDICATION
     Dosage: 37.5 MG/325 MG
     Route: 065
  13. DAFALGAN [Concomitant]
     Indication: PRODUCT USED FOR UNKNOWN INDICATION
     Dosage: 2 GRAM
     Route: 065
  14. ALLOPURINOL [Concomitant]
     Indication: PRODUCT USED FOR UNKNOWN INDICATION
     Dosage: 200 MILLIGRAM
     Route: 065
  15. PLATELETS, CONCENTRATED [Concomitant]
     Indication: PRODUCT USED FOR UNKNOWN INDICATION
     Route: 065
  16. RED BLOOD CELLS [Concomitant]
     Indication: PRODUCT USED FOR UNKNOWN INDICATION
     Route: 065

REACTIONS (8)
  - Necrotising fasciitis [Fatal]
  - Multi-organ failure [Fatal]
  - Lactic acidosis [Fatal]
  - Septic shock [Fatal]
  - Blood blister [Not Recovered/Not Resolved]
  - Crepitations [Not Recovered/Not Resolved]
  - Injection site pain [Not Recovered/Not Resolved]
  - Haematoma [Not Recovered/Not Resolved]
